FAERS Safety Report 19312253 (Version 1)
Quarter: 2021Q2

REPORT INFORMATION
  Report Type: Spontaneous
  Country: US (occurrence: US)
  Receive Date: 20210525
  Receipt Date: 20210525
  Transmission Date: 20210717
  Serious: Yes (Life-Threatening, Hospitalization)
  Sender: FDA-Public Use
  Company Number: None

PATIENT
  Age: 50 Year
  Sex: Female
  Weight: 55.79 kg

DRUGS (5)
  1. FAMOTIDINE. [Concomitant]
     Active Substance: FAMOTIDINE
  2. ONDANSETRON [Concomitant]
     Active Substance: ONDANSETRON
  3. CHLORAPREP ONE?STEP [Suspect]
     Active Substance: CHLORHEXIDINE GLUCONATE\ISOPROPYL ALCOHOL
     Dates: start: 20180907, end: 20200709
  4. DEXILANT [Concomitant]
     Active Substance: DEXLANSOPRAZOLE
  5. MAGNESIUM HYDROXIDE. [Concomitant]
     Active Substance: MAGNESIUM HYDROXIDE

REACTIONS (4)
  - Bacterial test positive [None]
  - Device related infection [None]
  - Product contamination microbial [None]
  - Sepsis [None]

NARRATIVE: CASE EVENT DATE: 20200629
